FAERS Safety Report 7930810-5 (Version None)
Quarter: 2011Q4

REPORT INFORMATION
  Report Type: 
  Country: None (occurrence: None)
  Receive Date: 20111121
  Receipt Date: 20111115
  Transmission Date: 20120403
  Serious: Yes (Other)
  Sender: FDA-Public Use
  Company Number: JP-GLAXOSMITHKLINE-B0763453A

PATIENT

DRUGS (2)
  1. ZOVIRAX [Suspect]
     Indication: ENCEPHALITIS HERPES
     Route: 042
     Dates: start: 20111111, end: 20111114
  2. RISPERDAL [Concomitant]
     Route: 065

REACTIONS (1)
  - ALTERED STATE OF CONSCIOUSNESS [None]
